FAERS Safety Report 17617141 (Version 1)
Quarter: 2020Q2

REPORT INFORMATION
  Report Type: Spontaneous
  Country: US (occurrence: US)
  Receive Date: 20200402
  Receipt Date: 20200402
  Transmission Date: 20200713
  Serious: No
  Sender: FDA-Public Use
  Company Number: US-SA-2020SA077740

PATIENT
  Sex: Male

DRUGS (1)
  1. ZANTAC 150 MAXIMUM STRENGTH COOL MINT [Suspect]
     Active Substance: RANITIDINE HYDROCHLORIDE

REACTIONS (2)
  - Lower limb fracture [Unknown]
  - Hypoacusis [Unknown]
